FAERS Safety Report 10464668 (Version 3)
Quarter: 2014Q4

REPORT INFORMATION
  Report Type: Spontaneous
  Country: JP (occurrence: JP)
  Receive Date: 20140919
  Receipt Date: 20141013
  Transmission Date: 20150528
  Serious: Yes (Other)
  Sender: FDA-Public Use
  Company Number: JP-009507513-1409JPN005475

PATIENT
  Age: 71 Year
  Sex: Female
  Weight: 33 kg

DRUGS (14)
  1. CANCIDAS [Suspect]
     Active Substance: CASPOFUNGIN ACETATE
     Indication: SYSTEMIC CANDIDA
     Dosage: 70 MG, ONCE A DAY
     Route: 041
     Dates: start: 20140514, end: 20140514
  2. ABILIFY [Concomitant]
     Active Substance: ARIPIPRAZOLE
     Indication: DEPRESSION
     Dosage: 3 MG, INTERVAL 1 DAY
     Route: 048
     Dates: start: 20140522, end: 20140611
  3. SERMION [Concomitant]
     Active Substance: NICERGOLINE
     Indication: DISUSE SYNDROME
     Dosage: 5 MG, 3 IN 1 DAY INTERVAL
     Route: 048
     Dates: start: 20140528
  4. CANCIDAS [Suspect]
     Active Substance: CASPOFUNGIN ACETATE
     Indication: SYSTEMIC CANDIDA
     Dosage: 50 MG, ONCE A DAY
     Route: 041
     Dates: start: 20140515, end: 20140616
  5. SULBACILLIN [Concomitant]
     Active Substance: AMPICILLIN SODIUM\SULBACTAM SODIUM
     Indication: PNEUMONIA ASPIRATION
     Dosage: 1.5 G, QID
     Route: 051
     Dates: start: 20140612, end: 20140621
  6. SERENACE [Concomitant]
     Active Substance: HALOPERIDOL
     Indication: DISUSE SYNDROME
     Dosage: 5 MG, QD
     Route: 051
     Dates: start: 20140504, end: 20140612
  7. VITAMEDIN INTRAVENOUS [Concomitant]
     Active Substance: CYANOCOBALAMIN\PYRIDOXINE HYDROCHLORIDE\THIAMINE
     Indication: OVARIAN CANCER
     Dosage: 1 DF, 1 IN 1 DAY INTERVAL
     Route: 051
     Dates: start: 20140422
  8. CEFMETAZOLE SODIUM [Concomitant]
     Active Substance: CEFMETAZOLE SODIUM
     Indication: DECREASED IMMUNE RESPONSIVENESS
     Dosage: 1 G, BID
     Route: 051
     Dates: start: 20140514, end: 20140515
  9. MAXIPIME [Concomitant]
     Active Substance: CEFEPIME HYDROCHLORIDE
     Indication: DECREASED IMMUNE RESPONSIVENESS
     Dosage: 1 G, TID
     Route: 051
     Dates: start: 20140516, end: 20140519
  10. SOYBEAN OIL [Concomitant]
     Active Substance: SOYBEAN OIL
     Indication: OVARIAN CANCER
     Dosage: 100 ML, INTERVAL 1 DAY
     Route: 051
     Dates: start: 20140407, end: 20140514
  11. METILON [Concomitant]
     Active Substance: METAMIZOLE SODIUM
     Indication: DECREASED IMMUNE RESPONSIVENESS
     Dosage: 250 MG, QD
     Route: 051
     Dates: start: 20140512, end: 20140612
  12. CODEINE [Concomitant]
     Active Substance: CODEINE
     Indication: OVARIAN CANCER
     Dosage: 15 MG, QD
     Route: 048
     Dates: start: 20140610, end: 20140611
  13. GRAN [Concomitant]
     Active Substance: FILGRASTIM
     Indication: DECREASED IMMUNE RESPONSIVENESS
     Dosage: 0.3 ML,QD
     Route: 051
     Dates: start: 20140513, end: 20140515
  14. FLUMARIN [Concomitant]
     Active Substance: FLOMOXEF SODIUM
     Indication: DECREASED IMMUNE RESPONSIVENESS
     Dosage: 1 G, 3 IN 1DAY INTERVAL
     Route: 051
     Dates: start: 20140512, end: 20140515

REACTIONS (9)
  - Ovarian cancer [Recovered/Resolved]
  - Pneumonia aspiration [Not Recovered/Not Resolved]
  - Disuse syndrome [Not Recovered/Not Resolved]
  - Neutrophil count increased [Recovered/Resolved]
  - Liver disorder [Not Recovered/Not Resolved]
  - Depression [Recovering/Resolving]
  - Overdose [Unknown]
  - White blood cell count increased [Recovered/Resolved]
  - C-reactive protein abnormal [Recovered/Resolved]

NARRATIVE: CASE EVENT DATE: 20140516
